FAERS Safety Report 5080878-1 (Version None)
Quarter: 2006Q3

REPORT INFORMATION
  Report Type: 
  Country: None (occurrence: None)
  Receive Date: 20060811
  Receipt Date: 20060801
  Transmission Date: 20061208
  Serious: Yes (Hospitalization, Other)
  Sender: FDA-Public Use
  Company Number: 2006095052

PATIENT
  Age: 31 Year
  Sex: Male

DRUGS (1)
  1. DEPO-MEDROL [Suspect]
     Indication: RADICULAR PAIN
     Dosage: 60 MG (60 MG, 1 IN 1 TOTAL)

REACTIONS (6)
  - AMNESIA [None]
  - BRAIN HERNIATION [None]
  - CEREBELLAR INFARCTION [None]
  - DIPLOPIA [None]
  - DISTURBANCE IN ATTENTION [None]
  - NECK PAIN [None]
